FAERS Safety Report 7860523-X (Version None)
Quarter: 2011Q4

REPORT INFORMATION
  Report Type: 
  Country: None (occurrence: None)
  Receive Date: 20111025
  Receipt Date: 20111015
  Transmission Date: 20120403
  Serious: Yes (Other)
  Sender: FDA-Public Use
  Company Number: ADR-2011-11305

PATIENT
  Age: 65 Year
  Sex: Male

DRUGS (1)
  1. LIORESAL [Suspect]
     Indication: PAIN
     Dosage: DAILY INTRATH
     Route: 037

REACTIONS (3)
  - BRAIN DEATH [None]
  - COMA [None]
  - DEVICE INEFFECTIVE [None]
